FAERS Safety Report 23867227 (Version 1)
Quarter: 2024Q2

REPORT INFORMATION
  Report Type: Spontaneous
  Country: US (occurrence: None)
  Receive Date: 20240516
  Receipt Date: 20240516
  Transmission Date: 20240716
  Serious: Yes (Death)
  Sender: FDA-Public Use
  Company Number: None

PATIENT
  Age: 77 Year
  Sex: Female

DRUGS (1)
  1. COSENTYX [Suspect]
     Active Substance: SECUKINUMAB
     Indication: Pulmonary arteriopathy
     Dosage: OTHER FREQUENCY : QID;?
     Route: 058
     Dates: start: 20240119, end: 20240429

REACTIONS (1)
  - Death [None]

NARRATIVE: CASE EVENT DATE: 20240429
